FAERS Safety Report 6763389-4 (Version None)
Quarter: 2010Q2

REPORT INFORMATION
  Report Type: 
  Country: None (occurrence: None)
  Receive Date: 20100608
  Receipt Date: 20100608
  Transmission Date: 20101027
  Serious: Yes (Other)
  Sender: FDA-Public Use
  Company Number: None

PATIENT
  Age: 39 Year
  Sex: Female
  Weight: 104.3273 kg

DRUGS (5)
  1. BUPROPION HCL [Suspect]
     Dosage: 450 MG PO
     Route: 048
     Dates: start: 20091110
  2. ABILIFY [Concomitant]
  3. TEMAZEPAM [Concomitant]
  4. TRAZODONE HYDROCHLORIDE [Concomitant]
  5. XANAX [Concomitant]

REACTIONS (2)
  - DRUG INEFFECTIVE [None]
  - PRODUCT SUBSTITUTION ISSUE [None]
